FAERS Safety Report 10472913 (Version 8)
Quarter: 2019Q2

REPORT INFORMATION
  Report Type: Report from Study
  Country: US (occurrence: US)
  Receive Date: 20140924
  Receipt Date: 20190531
  Transmission Date: 20190711
  Serious: Yes (Death, Hospitalization, Disabling, Other)
  Sender: FDA-Public Use
  Company Number: US-SANOFI-AVENTIS-2013SA049634

PATIENT
  Age: 39 Year
  Sex: Male
  Weight: 113.3 kg

DRUGS (17)
  1. SUBOXONE [Concomitant]
     Active Substance: BUPRENORPHINE HYDROCHLORIDE\NALOXONE HYDROCHLORIDE
     Indication: PAIN
     Dosage: 8 MG-2 MG SL FILM
  2. CYMBALTA [Concomitant]
     Active Substance: DULOXETINE HYDROCHLORIDE
     Dosage: 30 MG,UNK
  3. SYNTHROID [Concomitant]
     Active Substance: LEVOTHYROXINE SODIUM
     Indication: HYPOTHYROIDISM
     Dosage: 50 UG,UNK
  4. FLUOXETINE [Concomitant]
     Active Substance: FLUOXETINE HYDROCHLORIDE
     Dosage: UNK
  5. TERIFLUNOMIDE. [Suspect]
     Active Substance: TERIFLUNOMIDE
     Indication: MULTIPLE SCLEROSIS
     Dosage: 14 MG,QD
     Route: 048
     Dates: start: 20130127
  6. COUMADIN [Concomitant]
     Active Substance: WARFARIN SODIUM
     Dosage: 7.5 UNK
  7. SEROQUEL [Concomitant]
     Active Substance: QUETIAPINE FUMARATE
     Indication: MENTAL DISORDER
     Dosage: 400 MG,UNK
  8. COUMADIN [Concomitant]
     Active Substance: WARFARIN SODIUM
     Dosage: 5 MG,UNK
  9. FISH OIL [Concomitant]
     Active Substance: FISH OIL
     Dosage: 1000 MG,UNK
  10. DEPAKOTE [Concomitant]
     Active Substance: DIVALPROEX SODIUM
     Indication: AFFECTIVE DISORDER
     Dosage: 500 MG,QID
  11. VITAMINS NOS [Concomitant]
     Active Substance: VITAMINS
     Dosage: UNK
  12. TESTOSTERONE. [Concomitant]
     Active Substance: TESTOSTERONE
     Dosage: UNK
  13. ERGOCALCIFEROL. [Concomitant]
     Active Substance: ERGOCALCIFEROL
     Dosage: 2000 DF,UNK
  14. MACROGOL [Concomitant]
     Active Substance: POLYETHYLENE GLYCOLS
     Dosage: UNK
  15. TEMAZEPAM. [Concomitant]
     Active Substance: TEMAZEPAM
     Dosage: 30 MG,UNK
  16. PROPRANOLOL [Concomitant]
     Active Substance: PROPRANOLOL HYDROCHLORIDE
     Indication: MIGRAINE
     Dosage: 60 MG,UNK
  17. LANSOPRAZOLE. [Concomitant]
     Active Substance: LANSOPRAZOLE
     Dosage: 30 MG,UNK

REACTIONS (20)
  - Posture abnormal [Not Recovered/Not Resolved]
  - Paraesthesia [Unknown]
  - Suicide attempt [Recovered/Resolved]
  - Wheelchair user [Not Recovered/Not Resolved]
  - Bladder disorder [Not Recovered/Not Resolved]
  - Suicide threat [Recovered/Resolved]
  - Mental disorder [Not Recovered/Not Resolved]
  - Choking [Fatal]
  - Temperature intolerance [Not Recovered/Not Resolved]
  - Pulmonary thrombosis [Recovered/Resolved]
  - Posture abnormal [Unknown]
  - Condition aggravated [Not Recovered/Not Resolved]
  - Multiple sclerosis relapse [Not Recovered/Not Resolved]
  - Headache [Not Recovered/Not Resolved]
  - Secondary progressive multiple sclerosis [Unknown]
  - Speech disorder [Unknown]
  - Fall [Not Recovered/Not Resolved]
  - Burning sensation [Unknown]
  - Multiple sclerosis [Unknown]
  - Nasal congestion [Unknown]

NARRATIVE: CASE EVENT DATE: 2016
